FAERS Safety Report 15543740 (Version 1)
Quarter: 2018Q4

REPORT INFORMATION
  Report Type: Spontaneous
  Country: NL (occurrence: NL)
  Receive Date: 20181023
  Receipt Date: 20181023
  Transmission Date: 20190205
  Serious: Yes (Other)
  Sender: FDA-Public Use
  Company Number: NL-PFIZER INC-2018400528

PATIENT
  Age: 30 Year
  Sex: Female

DRUGS (7)
  1. SOMAVERT [Suspect]
     Active Substance: PEGVISOMANT
     Indication: ACROMEGALY
     Dosage: UNK
     Route: 058
     Dates: start: 20131103
  2. OXYCODON [Concomitant]
     Active Substance: OXYCODONE
     Dosage: 40 MG, 2X/WEEK
  3. OXYCODON [Concomitant]
     Active Substance: OXYCODONE
     Dosage: 40 MG, 2X/WEEK
  4. KETOTIFEN [Concomitant]
     Active Substance: KETOTIFEN
     Dosage: 0.25 MG/ML, 2X/DAY
     Route: 047
  5. SOMAVERT [Suspect]
     Active Substance: PEGVISOMANT
     Dosage: 40 MG, 2X/WEEK
     Route: 058
     Dates: start: 201807
  6. OXYCODON [Concomitant]
     Active Substance: OXYCODONE
     Dosage: 40 MG, 1X/WEEK
  7. HYPROMELLOSE [Concomitant]
     Active Substance: HYPROMELLOSES
     Dosage: AS PRESCRIBED
     Route: 047

REACTIONS (3)
  - Malaise [Unknown]
  - Product use issue [Unknown]
  - Hidradenitis [Unknown]

NARRATIVE: CASE EVENT DATE: 201705
